FAERS Safety Report 19962889 (Version 1)
Quarter: 2021Q4

REPORT INFORMATION
  Report Type: Spontaneous
  Country: IR (occurrence: IR)
  Receive Date: 20211018
  Receipt Date: 20211018
  Transmission Date: 20220303
  Serious: Yes (Other)
  Sender: FDA-Public Use
  Company Number: IR-ABBVIE-21K-080-4117439-00

PATIENT
  Age: 30 Year
  Sex: Male
  Weight: 87 kg

DRUGS (1)
  1. VALPROATE SODIUM [Suspect]
     Active Substance: VALPROATE SODIUM
     Indication: Migraine
     Route: 048
     Dates: start: 20190204

REACTIONS (26)
  - Narcolepsy [Recovering/Resolving]
  - Muscle tightness [Recovering/Resolving]
  - Asthma [Recovering/Resolving]
  - Memory impairment [Recovering/Resolving]
  - Attention deficit hyperactivity disorder [Recovering/Resolving]
  - Hallucination, auditory [Recovering/Resolving]
  - Eye movement disorder [Recovering/Resolving]
  - Hypoacusis [Recovering/Resolving]
  - Gingival disorder [Recovering/Resolving]
  - Body temperature decreased [Recovering/Resolving]
  - Behaviour disorder [Recovering/Resolving]
  - Mental disorder [Recovering/Resolving]
  - Gait disturbance [Recovering/Resolving]
  - Abdominal pain upper [Recovering/Resolving]
  - Hypoaesthesia [Unknown]
  - Visual impairment [Unknown]
  - Hallucination, visual [Recovering/Resolving]
  - Anxiety [Not Recovered/Not Resolved]
  - Oral discomfort [Recovering/Resolving]
  - Vertigo [Not Recovered/Not Resolved]
  - Off label use [Unknown]
  - Stomatitis [Recovering/Resolving]
  - Tremor [Recovering/Resolving]
  - Alopecia [Recovering/Resolving]
  - Headache [Recovering/Resolving]
  - Diarrhoea [Recovering/Resolving]

NARRATIVE: CASE EVENT DATE: 20190201
